FAERS Safety Report 6220096-4 (Version None)
Quarter: 2009Q2

REPORT INFORMATION
  Report Type: 
  Country: None (occurrence: None)
  Receive Date: 20090609
  Receipt Date: 20090527
  Transmission Date: 20091009
  Serious: Yes (Other)
  Sender: FDA-Public Use
  Company Number: GB-ELI_LILLY_AND_COMPANY-GB200903003613

PATIENT
  Sex: Female

DRUGS (1)
  1. BYETTA [Suspect]
     Dosage: 10 UG, UNKNOWN
     Route: 065
     Dates: start: 20070301

REACTIONS (4)
  - INJECTION SITE ABSCESS [None]
  - INJECTION SITE DISCOLOURATION [None]
  - NAUSEA [None]
  - NEOPLASM MALIGNANT [None]
